FAERS Safety Report 16124404 (Version 2)
Quarter: 2019Q2

REPORT INFORMATION
  Report Type: Spontaneous
  Country: US (occurrence: US)
  Receive Date: 20190327
  Receipt Date: 20190627
  Transmission Date: 20190711
  Serious: No
  Sender: FDA-Public Use
  Company Number: US-SA-2019SA083759

PATIENT
  Age: 60 Year
  Sex: Female

DRUGS (3)
  1. DUPIXENT [Suspect]
     Active Substance: DUPILUMAB
     Dosage: 1 DF, QOW
     Route: 058
     Dates: start: 20190317
  2. DUPIXENT [Suspect]
     Active Substance: DUPILUMAB
     Indication: IRON DEFICIENCY ANAEMIA
     Dosage: 300 MG, QOW
     Route: 058
     Dates: start: 20190301
  3. INJECTAFER [Concomitant]
     Active Substance: FERRIC CARBOXYMALTOSE

REACTIONS (3)
  - Injection site pain [Recovered/Resolved]
  - Product use in unapproved indication [Unknown]
  - Drug ineffective [Unknown]

NARRATIVE: CASE EVENT DATE: 20190317
